FAERS Safety Report 5160126-4 (Version None)
Quarter: 2006Q4

REPORT INFORMATION
  Report Type: 
  Country: None (occurrence: None)
  Receive Date: 20061129
  Receipt Date: 20061122
  Transmission Date: 20070319
  Serious: Yes (Hospitalization, Other)
  Sender: FDA-Public Use
  Company Number: US-JNJFOC-20061005581

PATIENT
  Sex: Female
  Weight: 53.98 kg

DRUGS (11)
  1. REMICADE [Suspect]
     Route: 042
  2. REMICADE [Suspect]
     Indication: CROHN'S DISEASE
     Route: 042
  3. ASACOL [Concomitant]
  4. DICYCLOMINE [Concomitant]
  5. PREDNISONE TAB [Concomitant]
  6. IMURAN [Concomitant]
  7. AMYTRIPTYLINE [Concomitant]
     Dosage: 25 MG AT HOUR OF SLEEP
  8. RANITIDINE [Concomitant]
  9. HYDROXYZINE [Concomitant]
  10. TRAMADOL HCL [Concomitant]
  11. LIBRIUM [Concomitant]

REACTIONS (2)
  - CHOLELITHIASIS [None]
  - HAEMATEMESIS [None]
